FAERS Safety Report 4791777-4 (Version None)
Quarter: 2005Q4

REPORT INFORMATION
  Report Type: 
  Country: None (occurrence: None)
  Receive Date: 20051005
  Receipt Date: 20050926
  Transmission Date: 20060501
  Serious: Yes (Other)
  Sender: FDA-Public Use
  Company Number: 2005RL000071

PATIENT
  Age: 57 Year
  Sex: Male

DRUGS (5)
  1. OMACOR [Suspect]
     Dosage: QD; PO
     Route: 048
     Dates: start: 20050318, end: 20050614
  2. TRIATEC [Concomitant]
  3. KARDEGIC [Concomitant]
  4. TAHOR [Concomitant]
  5. ATENOLOL [Concomitant]

REACTIONS (2)
  - CONDITION AGGRAVATED [None]
  - VENTRICULAR EXTRASYSTOLES [None]
